FAERS Safety Report 8803233 (Version 1)
Quarter: 2012Q4

REPORT INFORMATION
  Report Type: 
  Country: BR (occurrence: BR)
  Receive Date: 20120924
  Receipt Date: 20120924
  Transmission Date: 20130627
  Serious: Yes (Death, Hospitalization)
  Sender: FDA-Public Use
  Company Number: BR-PFIZER INC-2012231145

PATIENT
  Age: 93 Year
  Sex: Female

DRUGS (1)
  1. DETRUSITOL LA [Suspect]
     Indication: URINARY INCONTINENCE
     Dosage: 4 mg, 1x/day
     Route: 048
     Dates: start: 20081008

REACTIONS (2)
  - Organ failure [Fatal]
  - Feeling abnormal [Unknown]
